FAERS Safety Report 4690701-2 (Version None)
Quarter: 2005Q2

REPORT INFORMATION
  Report Type: 
  Country: None (occurrence: None)
  Receive Date: 20050615
  Receipt Date: 20050609
  Transmission Date: 20051028
  Serious: Yes (Hospitalization)
  Sender: FDA-Public Use
  Company Number: US-BRISTOL-MYERS SQUIBB COMPANY-13000344

PATIENT
  Age: 68 Year
  Sex: Female
  Weight: 59 kg

DRUGS (12)
  1. CETUXIMAB [Suspect]
     Indication: NON-SMALL CELL LUNG CANCER
     Dosage: HELD
     Route: 042
     Dates: start: 20050504
  2. CARBOPLATIN [Suspect]
     Indication: NON-SMALL CELL LUNG CANCER
     Dosage: HELD.
     Route: 042
     Dates: start: 20050511
  3. PACLITAXEL [Suspect]
     Indication: NON-SMALL CELL LUNG CANCER
     Dosage: HELD.
     Route: 042
     Dates: start: 20050511
  4. ZOFRAN [Concomitant]
  5. PHENERGAN [Concomitant]
  6. IMODIUM [Concomitant]
  7. TESSALON [Concomitant]
  8. ZOCOR [Concomitant]
  9. TOPROL-XL [Concomitant]
  10. LISINOPRIL [Concomitant]
  11. ASPIRIN [Concomitant]
  12. FOSAMAX [Concomitant]

REACTIONS (1)
  - UROSEPSIS [None]
